FAERS Safety Report 9006704 (Version 2)
Quarter: 2013Q1

REPORT INFORMATION
  Report Type: Report from Study
  Country: TR (occurrence: TR)
  Receive Date: 20130110
  Receipt Date: 20130110
  Transmission Date: 20140127
  Serious: Yes (Other)
  Sender: FDA-Public Use
  Company Number: TR-ROCHE-1176815

PATIENT
  Age: 66 Year
  Sex: Male
  Weight: 74.5 kg

DRUGS (1)
  1. VEMURAFENIB [Suspect]
     Indication: MALIGNANT MELANOMA
     Dosage: LAST DOSE PRIOR TO SAE: 17/DEC/2012
     Route: 048
     Dates: start: 20120528

REACTIONS (1)
  - Malignant melanoma [Recovered/Resolved]
